FAERS Safety Report 4519687-8 (Version None)
Quarter: 2004Q4

REPORT INFORMATION
  Report Type: 
  Country: None (occurrence: None)
  Receive Date: 20041206
  Receipt Date: 20041122
  Transmission Date: 20050328
  Serious: Yes (Hospitalization, Other)
  Sender: FDA-Public Use
  Company Number: PHFR2004GB04348

PATIENT
  Age: 44 Year
  Sex: Female

DRUGS (3)
  1. TAXOL [Suspect]
     Indication: BREAST CANCER
     Dosage: 80 MG/M2, UNK
     Route: 042
     Dates: start: 20040920
  2. HERCEPTIN [Suspect]
     Indication: BREAST CANCER
     Dosage: 21 MG/ML, UNK
     Route: 042
     Dates: start: 20040920
  3. ZOLEDRONATE [Suspect]
     Dosage: 4 MG, QW
     Dates: start: 20040920

REACTIONS (5)
  - LUNG DISORDER [None]
  - MUCOSAL INFLAMMATION [None]
  - NEUTROPENIA [None]
  - PULMONARY OEDEMA [None]
  - PYREXIA [None]
